FAERS Safety Report 5003972-X (Version None)
Quarter: 2006Q2

REPORT INFORMATION
  Report Type: 
  Country: None (occurrence: None)
  Receive Date: 20060515
  Receipt Date: 20060515
  Transmission Date: 20061013
  Serious: Yes (Other)
  Sender: FDA-Public Use
  Company Number: None

PATIENT
  Age: 45 Year
  Sex: Female
  Weight: 118.8424 kg

DRUGS (2)
  1. EFFEXOR XR [Suspect]
     Indication: DEPRESSION
     Dosage: 3 CAPSULES FOR A TOTAL 225MG   ONCE PER DAY  PO
     Route: 048
     Dates: start: 20011101, end: 20060512
  2. EFFEXOR XR [Suspect]
     Indication: GENERALISED ANXIETY DISORDER
     Dosage: 3 CAPSULES FOR A TOTAL 225MG   ONCE PER DAY  PO
     Route: 048
     Dates: start: 20011101, end: 20060512

REACTIONS (7)
  - ABNORMAL DREAMS [None]
  - CRYING [None]
  - DIARRHOEA [None]
  - DISORIENTATION [None]
  - DRUG WITHDRAWAL SYNDROME [None]
  - MOOD SWINGS [None]
  - NAUSEA [None]
